FAERS Safety Report 5915347-7 (Version None)
Quarter: 2008Q4

REPORT INFORMATION
  Report Type: 
  Country: None (occurrence: None)
  Receive Date: 20081010
  Receipt Date: 20081001
  Transmission Date: 20090506
  Serious: Yes (Hospitalization, Other)
  Sender: FDA-Public Use
  Company Number: FR-ROCHE-237332

PATIENT
  Sex: Male
  Weight: 87 kg

DRUGS (4)
  1. ROACCUTANE [Suspect]
     Indication: ACNE
     Route: 048
     Dates: start: 19991026, end: 19991126
  2. ROACCUTANE [Suspect]
     Route: 048
     Dates: start: 19991127, end: 20000331
  3. DOLIPRANE [Concomitant]
     Route: 048
     Dates: start: 19991125, end: 19991205
  4. ACETAMINOPHEN [Concomitant]
     Route: 048
     Dates: start: 19991125, end: 19991205

REACTIONS (8)
  - ARTHRALGIA [None]
  - ASTHENIA [None]
  - DEPRESSION [None]
  - DRY EYE [None]
  - FIBROMYALGIA [None]
  - OPTIC NEURITIS [None]
  - VERTIGO [None]
  - VISION BLURRED [None]
